FAERS Safety Report 10225968 (Version 2)
Quarter: 2014Q2

REPORT INFORMATION
  Report Type: Spontaneous
  Country: US (occurrence: US)
  Receive Date: 20140609
  Receipt Date: 20140609
  Transmission Date: 20141212
  Serious: Yes (Hospitalization)
  Sender: FDA-Public Use
  Company Number: US-ASTELLAS-2011US000790

PATIENT
  Age: 58 Year
  Sex: Female
  Weight: 52 kg

DRUGS (18)
  1. PROGRAF [Suspect]
     Indication: LUNG TRANSPLANT
     Route: 065
     Dates: start: 20090704
  2. BACTRIM [Concomitant]
     Indication: INFECTION PROPHYLAXIS
     Route: 065
     Dates: start: 20110209
  3. DUONEB [Concomitant]
     Indication: INHALATION THERAPY
     Route: 055
  4. ALBUTEROL [Concomitant]
     Indication: INHALATION THERAPY
     Route: 055
  5. ASPIRIN [Concomitant]
     Indication: ANTICOAGULANT THERAPY
     Route: 048
     Dates: start: 20090704
  6. CALCIUM [Concomitant]
     Indication: MINERAL SUPPLEMENTATION
     Route: 048
  7. ACTONEL [Concomitant]
     Indication: OSTEOPOROSIS
     Route: 065
  8. FLONASE [Concomitant]
     Indication: NASAL CONGESTION
     Route: 045
  9. INSULIN [Concomitant]
     Indication: DIABETES MELLITUS
     Route: 065
  10. PREDNISONE [Concomitant]
     Indication: LUNG TRANSPLANT
     Route: 065
     Dates: start: 20110209
  11. METOPROLOL [Concomitant]
     Indication: HYPERTENSION
     Route: 065
  12. MULTIVITAMIN [Concomitant]
     Indication: PRODUCT USED FOR UNKNOWN INDICATION
     Route: 065
  13. ZYPREXA [Concomitant]
     Indication: PRODUCT USED FOR UNKNOWN INDICATION
     Route: 048
  14. NEXIUM [Concomitant]
     Indication: GASTROOESOPHAGEAL REFLUX DISEASE
     Route: 065
  15. EFFEXOR [Concomitant]
     Indication: PRODUCT USED FOR UNKNOWN INDICATION
     Route: 065
  16. AMLODIPINE [Concomitant]
     Indication: BLOOD PRESSURE
     Route: 065
  17. VALCYTE [Concomitant]
     Indication: CYTOMEGALOVIRUS INFECTION
     Route: 065
  18. LEVEMIR [Concomitant]
     Indication: DIABETES MELLITUS
     Route: 065

REACTIONS (4)
  - Off label use [Not Recovered/Not Resolved]
  - Dyspnoea [Unknown]
  - Eye pain [Recovered/Resolved]
  - Sinusitis [Recovering/Resolving]
